FAERS Safety Report 4749339-0 (Version None)
Quarter: 2005Q3

REPORT INFORMATION
  Report Type: 
  Country: None (occurrence: None)
  Receive Date: 20050819
  Receipt Date: 20050809
  Transmission Date: 20060218
  Serious: Yes (Life-Threatening, Hospitalization, Other)
  Sender: FDA-Public Use
  Company Number: DE-ABBOTT-05P-062-0308077-00

PATIENT
  Sex: Male
  Weight: 72 kg

DRUGS (4)
  1. KLACID FORTE [Suspect]
     Indication: PNEUMONIA PRIMARY ATYPICAL
     Route: 048
     Dates: start: 20050308, end: 20050310
  2. CLAVULIN [Concomitant]
     Indication: PNEUMONIA PRIMARY ATYPICAL
     Route: 042
     Dates: start: 20030308, end: 20050310
  3. VOLTAREN [Concomitant]
     Indication: PLEURISY
     Route: 048
     Dates: start: 20030308, end: 20030310
  4. CORTICOIDS [Concomitant]
     Indication: ALLERGIC GRANULOMATOUS ANGIITIS
     Dates: start: 20050308

REACTIONS (4)
  - CARDIOGENIC SHOCK [None]
  - LONG QT SYNDROME [None]
  - VENTRICULAR FIBRILLATION [None]
  - VENTRICULAR TACHYCARDIA [None]
